FAERS Safety Report 4367470-9 (Version None)
Quarter: 2004Q2

REPORT INFORMATION
  Report Type: 
  Country: None (occurrence: None)
  Receive Date: 20040520
  Receipt Date: 20040507
  Transmission Date: 20050107
  Serious: Yes (Hospitalization)
  Sender: FDA-Public Use
  Company Number: 601251

PATIENT
  Age: 57 Year
  Sex: Female

DRUGS (3)
  1. POLYGAM S/D [Suspect]
     Indication: IDIOPATHIC THROMBOCYTOPENIC PURPURA
     Dosage: 50 GM; BIW; INTRAVENOUS
     Route: 042
     Dates: start: 20040331, end: 20040401
  2. ANTIOBIOTICS [Concomitant]
  3. PREDNISONE [Concomitant]

REACTIONS (8)
  - CEREBRAL INFARCTION [None]
  - CHOLECYSTECTOMY [None]
  - HAEMOLYTIC ANAEMIA [None]
  - HEMIPARESIS [None]
  - HYPERCOAGULATION [None]
  - PLATELET COUNT DECREASED [None]
  - SPEECH DISORDER [None]
  - SPLENECTOMY [None]
